FAERS Safety Report 8098836-1 (Version None)
Quarter: 2012Q1

REPORT INFORMATION
  Report Type: 
  Country: None (occurrence: None)
  Receive Date: 20120129
  Receipt Date: 20110921
  Transmission Date: 20120608
  Serious: No
  Sender: FDA-Public Use
  Company Number: US-ABBOTT-11P-163-0857556-00

PATIENT
  Sex: Male
  Weight: 77.18 kg

DRUGS (4)
  1. HUMIRA [Suspect]
     Dates: start: 20110907
  2. VICODIN [Concomitant]
     Indication: PAIN
  3. HUMIRA [Suspect]
     Indication: PSORIASIS
     Dates: start: 20080101, end: 20101001
  4. GABAPENTIN [Concomitant]
     Indication: NERVE INJURY

REACTIONS (1)
  - RASH [None]
